FAERS Safety Report 25829542 (Version 2)
Quarter: 2025Q3

REPORT INFORMATION
  Report Type: Spontaneous
  Country: EU (occurrence: EU)
  Receive Date: 20250922
  Receipt Date: 20250925
  Transmission Date: 20251020
  Serious: Yes (Other)
  Sender: GILEAD
  Company Number: None

PATIENT
  Age: 59 Year
  Sex: Female

DRUGS (1)
  1. EMTRICITABINE\RILPIVIRINE\TENOFOVIR DISOPROXIL FUMARATE [Suspect]
     Active Substance: EMTRICITABINE\RILPIVIRINE\TENOFOVIR DISOPROXIL FUMARATE
     Indication: HIV infection
     Dosage: 1 (200 MG + 25 MG + 245 MG)
     Route: 048
     Dates: start: 20240702, end: 20250306

REACTIONS (2)
  - Abdominal pain upper [Recovered/Resolved]
  - Abdominal distension [Recovered/Resolved]
